FAERS Safety Report 11488751 (Version 1)
Quarter: 2015Q3

REPORT INFORMATION
  Report Type: Spontaneous
  Country: US (occurrence: US)
  Receive Date: 20150910
  Receipt Date: 20150910
  Transmission Date: 20151125
  Serious: No
  Sender: FDA-Public Use
  Company Number: US-ROCHE-1487700

PATIENT
  Sex: Female

DRUGS (2)
  1. RIBAVIRIN. [Suspect]
     Active Substance: RIBAVIRIN
     Indication: HEPATITIS C
     Dosage: TAKE 2 CAPS TWICE A DAY
     Route: 048
  2. RIBAVIRIN. [Suspect]
     Active Substance: RIBAVIRIN
     Dosage: DOSE REDUCED?TAKE 2 CAPSULES IN MORNING AND 1 CAPSULE IN EVENING
     Route: 048
     Dates: end: 20141017

REACTIONS (2)
  - Alopecia [Not Recovered/Not Resolved]
  - Malaise [Recovered/Resolved]
